FAERS Safety Report 5535776-3 (Version None)
Quarter: 2007Q4

REPORT INFORMATION
  Report Type: 
  Country: None (occurrence: None)
  Receive Date: 20071204
  Receipt Date: 20071204
  Transmission Date: 20080405
  Serious: Yes (Other)
  Sender: FDA-Public Use
  Company Number: None

PATIENT
  Age: 28 Year
  Sex: Male
  Weight: 74.8435 kg

DRUGS (1)
  1. SELSUN SALON    ULTIMATE -PYRITHIONE ZINC    CHATTEM [Suspect]
     Indication: DANDRUFF
     Dosage: TEASPOON   DAILY   TOP
     Route: 061
     Dates: start: 20070201, end: 20071129

REACTIONS (1)
  - ALOPECIA [None]
